FAERS Safety Report 4533145-6 (Version None)
Quarter: 2004Q4

REPORT INFORMATION
  Report Type: 
  Country: None (occurrence: None)
  Receive Date: 20041210
  Receipt Date: 20040825
  Transmission Date: 20050328
  Serious: Yes (Hospitalization)
  Sender: FDA-Public Use
  Company Number: 2004-00421

PATIENT
  Age: 47 Year
  Sex: Female
  Weight: 49.9 kg

DRUGS (6)
  1. VELCADE [Suspect]
     Indication: MULTIPLE MYELOMA
     Dosage: 2.00 MG, INTRAVENOUS
     Route: 042
     Dates: start: 20040201, end: 20040801
  2. DEXAMETHASONE [Concomitant]
  3. PEPCID [Concomitant]
  4. SODIUM BICARBONATE IN PLASTIC CONTAINER [Concomitant]
  5. POTASSIUM CHLORIDE [Concomitant]
  6. LOMOTIL [Concomitant]

REACTIONS (1)
  - DIARRHOEA [None]
